FAERS Safety Report 25926524 (Version 1)
Quarter: 2025Q4

REPORT INFORMATION
  Report Type: Spontaneous
  Country: CN (occurrence: CN)
  Receive Date: 20251015
  Receipt Date: 20251015
  Transmission Date: 20260117
  Serious: Yes (Other)
  Sender: ALEXION PHARMACEUTICALS
  Company Number: CN-ASTRAZENECA-202510CHN010494CN

PATIENT
  Age: 88 Year
  Sex: Female
  Weight: 52 kg

DRUGS (3)
  1. DAPAGLIFLOZIN [Suspect]
     Active Substance: DAPAGLIFLOZIN
     Indication: Diabetes mellitus
     Dosage: 10.000000 MILLIGRAM,1 TIMES 1 DAY
     Dates: start: 20251007, end: 20251009
  2. REPAGLINIDE [Concomitant]
     Active Substance: REPAGLINIDE
     Indication: Diabetes mellitus
     Dosage: 1.000000, MILLIGRAM,1 TIMES 1 DAY
     Dates: start: 20251007, end: 20251009
  3. METFORMIN HYDROCHLORIDE [Concomitant]
     Active Substance: METFORMIN HYDROCHLORIDE
     Indication: Diabetes mellitus
     Dosage: 0.500000, GRAM, 3 TIMES A DAY
     Dates: start: 20251007, end: 20251009

REACTIONS (2)
  - Ketoacidosis [Recovered/Resolved]
  - Thyrotoxic crisis [Recovered/Resolved]

NARRATIVE: CASE EVENT DATE: 20251009
